FAERS Safety Report 15305390 (Version 1)
Quarter: 2018Q3

REPORT INFORMATION
  Report Type: Spontaneous
  Country: US (occurrence: US)
  Receive Date: 20180810
  Receipt Date: 20180810
  Transmission Date: 20181010
  Serious: Yes (Hospitalization, Other)
  Sender: FDA-Public Use
  Company Number: None

PATIENT
  Age: 71 Year
  Sex: Male
  Weight: 88.45 kg

DRUGS (3)
  1. OXALIPLATIN. [Suspect]
     Active Substance: OXALIPLATIN
     Indication: COLON CANCER
     Dosage: ?          OTHER FREQUENCY:14 DAYS;?
     Route: 042
     Dates: start: 20180709, end: 20180806
  2. 5FU [Concomitant]
     Active Substance: FLUOROURACIL
  3. FUSILEV [Concomitant]
     Active Substance: LEVOLEUCOVORIN CALCIUM

REACTIONS (3)
  - Protein urine present [None]
  - Haematuria [None]
  - Chills [None]

NARRATIVE: CASE EVENT DATE: 20180806
